FAERS Safety Report 21341306 (Version 3)
Quarter: 2023Q2

REPORT INFORMATION
  Report Type: Spontaneous
  Country: JP (occurrence: None)
  Receive Date: 20220916
  Receipt Date: 20230517
  Transmission Date: 20230721
  Serious: Yes (Other)
  Sender: FDA-Public Use
  Company Number: 2022A315923

PATIENT
  Age: 60 Year
  Sex: Female

DRUGS (5)
  1. TAGRISSO [Suspect]
     Active Substance: OSIMERTINIB
     Indication: Non-small cell lung cancer
     Route: 048
     Dates: start: 20190116, end: 20220223
  2. TAGRISSO [Suspect]
     Active Substance: OSIMERTINIB
     Indication: Non-small cell lung cancer
     Route: 048
     Dates: start: 20220308
  3. COMIRNATY [Concomitant]
     Active Substance: TOZINAMERAN
     Dosage: DOSE UNKNOWN UNKNOWN
     Route: 065
     Dates: start: 20220324
  4. RINDERON VG [Concomitant]
     Active Substance: BETAMETHASONE VALERATE\GENTAMICIN SULFATE
     Dosage: UNKNOWN
     Route: 065
  5. DIFLUPREDNATE [Concomitant]
     Active Substance: DIFLUPREDNATE
     Dosage: UNKNOWN UNKNOWN
     Route: 065

REACTIONS (16)
  - Seizure [Recovered/Resolved]
  - Dysarthria [Recovered/Resolved]
  - Chillblains [Recovering/Resolving]
  - Paronychia [Recovering/Resolving]
  - Dry skin [Recovering/Resolving]
  - Pruritus [Recovering/Resolving]
  - Alopecia [Unknown]
  - Jaw disorder [Unknown]
  - Salivary hypersecretion [Unknown]
  - Vision blurred [Unknown]
  - Urticaria [Unknown]
  - Dental caries [Unknown]
  - Dyspnoea exertional [Unknown]
  - Pain in extremity [Unknown]
  - Peripheral swelling [Unknown]
  - Muscle spasms [Unknown]

NARRATIVE: CASE EVENT DATE: 20220201
